FAERS Safety Report 16424907 (Version 3)
Quarter: 2020Q2

REPORT INFORMATION
  Report Type: Spontaneous
  Country: US (occurrence: US)
  Receive Date: 20190613
  Receipt Date: 20200602
  Transmission Date: 20200713
  Serious: Yes (Other)
  Sender: FDA-Public Use
  Company Number: US-GILEAD-2019-0413087

PATIENT
  Age: 54 Year
  Sex: Male
  Weight: 83.45 kg

DRUGS (50)
  1. PANTOPRAZOLE [Concomitant]
     Active Substance: PANTOPRAZOLE
  2. LYRICA [Concomitant]
     Active Substance: PREGABALIN
  3. OXYCODONE [Concomitant]
     Active Substance: OXYCODONE
  4. SEROQUEL [Concomitant]
     Active Substance: QUETIAPINE FUMARATE
  5. MORPHINE [Concomitant]
     Active Substance: MORPHINE
  6. ROCEPHIN [Concomitant]
     Active Substance: CEFTRIAXONE SODIUM
  7. TRUVADA [Suspect]
     Active Substance: EMTRICITABINE\TENOFOVIR DISOPROXIL FUMARATE
     Indication: HIV INFECTION
     Dosage: UNK
     Route: 048
     Dates: start: 2008, end: 2016
  8. OXYCODONE AND ACETAMINOPHEN [Concomitant]
     Active Substance: ACETAMINOPHEN\OXYCODONE HYDROCHLORIDE
  9. PREDNISONE. [Concomitant]
     Active Substance: PREDNISONE
  10. PEPCID [Concomitant]
     Active Substance: FAMOTIDINE
  11. NORVIR [Concomitant]
     Active Substance: RITONAVIR
  12. TYLENOL [Concomitant]
     Active Substance: ACETAMINOPHEN
  13. ASPIRIN (E.C.) [Concomitant]
     Active Substance: ASPIRIN
  14. VIREAD [Suspect]
     Active Substance: TENOFOVIR DISOPROXIL FUMARATE
     Indication: HIV INFECTION
     Dosage: UNK
     Route: 048
     Dates: start: 2004, end: 2006
  15. ACETAMINOPHEN AND CODEINE [Concomitant]
     Active Substance: ACETAMINOPHEN\CODEINE PHOSPHATE
  16. AMOXICILLIN. [Concomitant]
     Active Substance: AMOXICILLIN
  17. CYCLOBENZAPRINE. [Concomitant]
     Active Substance: CYCLOBENZAPRINE
  18. CLONAZEPAM. [Concomitant]
     Active Substance: CLONAZEPAM
  19. CROFELEMER [Concomitant]
     Active Substance: CROFELEMER
  20. KETOROLAC [Concomitant]
     Active Substance: KETOROLAC TROMETHAMINE
  21. SENNOSIDES. [Concomitant]
     Active Substance: SENNOSIDES
  22. AMMONIUM LACTATE. [Concomitant]
     Active Substance: AMMONIUM LACTATE
  23. ATROVENT [Concomitant]
     Active Substance: IPRATROPIUM BROMIDE
  24. SINGULAIR [Concomitant]
     Active Substance: MONTELUKAST SODIUM
  25. VITAMINS NOS [Concomitant]
     Active Substance: VITAMINS
  26. LOVENOX [Concomitant]
     Active Substance: ENOXAPARIN SODIUM
  27. MIDODRINE [Concomitant]
     Active Substance: MIDODRINE
  28. BENZONATATE. [Concomitant]
     Active Substance: BENZONATATE
  29. DIAZEPAM. [Concomitant]
     Active Substance: DIAZEPAM
  30. SYNTHROID [Concomitant]
     Active Substance: LEVOTHYROXINE SODIUM
  31. MYTESI [Concomitant]
     Active Substance: CROFELEMER
  32. CEFTRIAXONE. [Concomitant]
     Active Substance: CEFTRIAXONE
  33. PHOSPHADEN [ADENOSINE PHOSPHATE] [Concomitant]
  34. K-DUR [Concomitant]
     Active Substance: POTASSIUM CHLORIDE
  35. PREGABALIN. [Concomitant]
     Active Substance: PREGABALIN
  36. QUETIAPINE. [Concomitant]
     Active Substance: QUETIAPINE
  37. SODIUM CHLORIDE. [Concomitant]
     Active Substance: SODIUM CHLORIDE
  38. BISAC EVAC [Concomitant]
  39. PROAIR HFA [Concomitant]
     Active Substance: ALBUTEROL SULFATE
  40. LEVOFLOXACIN. [Concomitant]
     Active Substance: LEVOFLOXACIN
  41. ECOTRIN [Concomitant]
     Active Substance: ASPIRIN
  42. NYSTOP [Concomitant]
     Active Substance: NYSTATIN
  43. PREZISTA [Concomitant]
     Active Substance: DARUNAVIR ETHANOLATE
  44. TIVICAY [Concomitant]
     Active Substance: DOLUTEGRAVIR SODIUM
  45. LOPERAMIDE [Concomitant]
     Active Substance: LOPERAMIDE
  46. ATORVASTATIN [Concomitant]
     Active Substance: ATORVASTATIN
  47. LIPITOR [Concomitant]
     Active Substance: ATORVASTATIN CALCIUM
  48. FERROUS SULFATE. [Concomitant]
     Active Substance: FERROUS SULFATE
  49. PORCINE-FASTACT [Concomitant]
  50. NITROSTAT [Concomitant]
     Active Substance: NITROGLYCERIN

REACTIONS (14)
  - Tibia fracture [Not Recovered/Not Resolved]
  - Fracture [Unknown]
  - Chronic kidney disease [Unknown]
  - Bone loss [Unknown]
  - Anxiety [Unknown]
  - Anhedonia [Unknown]
  - Pain [Unknown]
  - Emotional distress [Unknown]
  - Fibula fracture [Not Recovered/Not Resolved]
  - Osteoporosis [Unknown]
  - Spinal operation [Unknown]
  - Osteonecrosis [Not Recovered/Not Resolved]
  - Tooth extraction [Recovered/Resolved]
  - Economic problem [Unknown]

NARRATIVE: CASE EVENT DATE: 20101221
